FAERS Safety Report 14375157 (Version 1)
Quarter: 2018Q1

REPORT INFORMATION
  Report Type: Spontaneous
  Country: US (occurrence: US)
  Receive Date: 20180110
  Receipt Date: 20180110
  Transmission Date: 20180509
  Serious: No
  Sender: FDA-Public Use
  Company Number: None

PATIENT
  Age: 36 Year
  Sex: Female
  Weight: 61.23 kg

DRUGS (6)
  1. SUMATRIPTAN AUTO INJECTOR [Suspect]
     Active Substance: SUMATRIPTAN
  2. LEXAPRO [Concomitant]
     Active Substance: ESCITALOPRAM OXALATE
  3. JUNEL [Concomitant]
     Active Substance: ETHINYL ESTRADIOL\NORETHINDRONE ACETATE
  4. ADDERALL [Concomitant]
     Active Substance: AMPHETAMINE ASPARTATE\AMPHETAMINE SULFATE\DEXTROAMPHETAMINE SACCHARATE\DEXTROAMPHETAMINE SULFATE
  5. MEXILETINE [Concomitant]
     Active Substance: MEXILETINE
  6. MELATONIN [Concomitant]
     Active Substance: MELATONIN

REACTIONS (4)
  - Injection site pruritus [None]
  - Incorrect dose administered by device [None]
  - Device malfunction [None]
  - Injection site erythema [None]

NARRATIVE: CASE EVENT DATE: 20180106
